FAERS Safety Report 12379377 (Version 2)
Quarter: 2016Q3

REPORT INFORMATION
  Report Type: Spontaneous
  Country: US (occurrence: US)
  Receive Date: 20160517
  Receipt Date: 20160901
  Transmission Date: 20161109
  Serious: No
  Sender: FDA-Public Use
  Company Number: US-RELYPSA-RLY2016000431

PATIENT
  Sex: Male

DRUGS (6)
  1. CARVEDILOL. [Concomitant]
     Active Substance: CARVEDILOL
  2. CLONIDINE HCL [Concomitant]
     Active Substance: CLONIDINE HYDROCHLORIDE
  3. PHOSLO [Concomitant]
     Active Substance: CALCIUM ACETATE
  4. VELTASSA [Suspect]
     Active Substance: PATIROMER
     Indication: HYPERKALAEMIA
     Dosage: 8.4 G, QD
     Route: 048
     Dates: start: 20160317
  5. AMLODIPINE BESYLATE AND ATORVASTATIN CALCIUM [Concomitant]
     Active Substance: AMLODIPINE BESYLATE\ATORVASTATIN CALCIUM
  6. NOVOLOG [Concomitant]
     Active Substance: INSULIN ASPART

REACTIONS (1)
  - Drug intolerance [Not Recovered/Not Resolved]
